FAERS Safety Report 18666139 (Version 1)
Quarter: 2020Q4

REPORT INFORMATION
  Report Type: Spontaneous
  Country: DE (occurrence: DE)
  Receive Date: 20201226
  Receipt Date: 20201226
  Transmission Date: 20210114
  Serious: Yes (Hospitalization, Other)
  Sender: FDA-Public Use
  Company Number: DE-TEVA-2020-DE-1860907

PATIENT
  Age: 85 Year
  Sex: Female
  Weight: 48.6 kg

DRUGS (16)
  1. EFEROX [Concomitant]
     Active Substance: LEVOTHYROXINE SODIUM
     Dosage: 100 MICROGRAM DAILY; 1-0-0-0
  2. APIXABAN [Concomitant]
     Active Substance: APIXABAN
     Dosage: 5 MILLIGRAM DAILY;  1-0-1-0
  3. ASCENDRA 3MG/3ML INJEKTIONSLOSUNG I.V. [Concomitant]
     Dosage: EVERY 3 MONTHS, SOLUTION FOR INJECTION / INFUSION
     Route: 042
  4. CETIRIZIN [Concomitant]
     Active Substance: CETIRIZINE HYDROCHLORIDE
     Dosage: .5 DOSAGE FORMS DAILY; 0-0.5-0-0
  5. ACETYLSALICYLSAURE [Concomitant]
     Active Substance: ASPIRIN
     Dosage: 100 MILLIGRAM DAILY;  1-0-0-0
  6. NALOXONE W/OXYCODONE [Concomitant]
     Active Substance: NALOXONE HYDROCHLORIDE\OXYCODONE HYDROCHLORIDE
     Dosage: 1.5 DOSAGE FORMS DAILY; 10|20 MG, 0.5-0.5-0.5-0
  7. PREDNISOLON [Suspect]
     Active Substance: PREDNISOLONE
     Dosage: 7.5 MILLIGRAM DAILY;  1-0-0-0
  8. METOPROLOL. [Suspect]
     Active Substance: METOPROLOL
     Dosage: 190 MILLIGRAM DAILY; 1-0-1-0
  9. CANDESARTAN. [Concomitant]
     Active Substance: CANDESARTAN
     Dosage: 16 MILLIGRAM DAILY; 1-0-0-0
  10. LEVETIRACETAM. [Concomitant]
     Active Substance: LEVETIRACETAM
     Dosage: 1500 MILLIGRAM DAILY;  1-0-1-0
  11. TORASEMIDE [Suspect]
     Active Substance: TORSEMIDE
     Dosage: 10 MG, 1-0.5-0-0
  12. ROSUSTAR 5MG [Concomitant]
     Dosage: 5 MILLIGRAM DAILY;  0-0-0-1
  13. QUENSYL 200MG [Suspect]
     Active Substance: HYDROXYCHLOROQUINE SULFATE
     Dosage: 200 MILLIGRAM DAILY;  0-1-0-0
  14. PANTOPRAZOL [Concomitant]
     Active Substance: PANTOPRAZOLE SODIUM
     Dosage: 20 MILLIGRAM DAILY;  0-0-1-0
  15. DEKRISTOL 20000I.E. [Concomitant]
     Dosage: 20,000 IU / WEEK, 1X
  16. LACTULOSE. [Concomitant]
     Active Substance: LACTULOSE
     Dosage: 15 ML DAILY; 1-0-0-0

REACTIONS (8)
  - General physical health deterioration [Unknown]
  - Diarrhoea [Unknown]
  - Asthenia [Unknown]
  - Brain natriuretic peptide abnormal [Unknown]
  - Pleural effusion [Unknown]
  - Urinary tract infection [Unknown]
  - Renal failure [Unknown]
  - Cardiac failure [Unknown]
